FAERS Safety Report 19139721 (Version 2)
Quarter: 2021Q2

REPORT INFORMATION
  Report Type: Report from Study
  Country: IS (occurrence: IS)
  Receive Date: 20210415
  Receipt Date: 20210422
  Transmission Date: 20210717
  Serious: Yes (Hospitalization, Other)
  Sender: FDA-Public Use
  Company Number: IS-PFIZER INC-2021382925

PATIENT
  Age: 77 Year
  Sex: Male
  Weight: 70 kg

DRUGS (15)
  1. FURIX [FUROSEMIDE] [Concomitant]
     Active Substance: FUROSEMIDE
     Dosage: 40 MG, 1X/DAY
  2. OMEPRAZOL [Concomitant]
     Active Substance: OMEPRAZOLE
     Dosage: 2 DF, 1X/DAY
  3. LEVAXIN [Concomitant]
     Active Substance: LEVOTHYROXINE SODIUM
     Dosage: 50 UG, 1X/DAY
  4. ELIQUIS [Concomitant]
     Active Substance: APIXABAN
     Dosage: 5 MG, 2X/DAY
  5. STILNOCT [Concomitant]
     Active Substance: ZOLPIDEM TARTRATE
     Dosage: 10 MG, 1X/DAY
  6. PANODIL [Concomitant]
     Active Substance: ACETAMINOPHEN
     Indication: PAIN
     Dosage: 500 MG, 3X/DAY
     Route: 048
     Dates: start: 20150101
  7. EPLERENONE. [Concomitant]
     Active Substance: EPLERENONE
     Dosage: 2 DF, 1X/DAY
  8. EPLERENONE. [Concomitant]
     Active Substance: EPLERENONE
     Dosage: 50 MG, 1X/DAY
  9. BLOXAZOC [Concomitant]
     Active Substance: METOPROLOL SUCCINATE
     Dosage: 23.75 MG, 1X/DAY
  10. DUTASTERIDE. [Concomitant]
     Active Substance: DUTASTERIDE
     Dosage: 0.5 MG, 1X/DAY
  11. LOSARTAN. [Concomitant]
     Active Substance: LOSARTAN
     Dosage: 2 DF, 1X/DAY
  12. TAFAMIDIS [Suspect]
     Active Substance: TAFAMIDIS MEGLUMINE
     Indication: CARDIAC AMYLOIDOSIS
     Dosage: 61 MG, 1X/DAY
     Route: 048
     Dates: start: 20191121, end: 20201208
  13. KALEORID [Concomitant]
     Active Substance: POTASSIUM CHLORIDE
     Dosage: 750 MG, 1X/DAY
  14. AMITRIPTYLIN [Concomitant]
     Active Substance: AMITRIPTYLINE
     Dosage: 10 MG, 1X/DAY
  15. PANODIL [Concomitant]
     Active Substance: ACETAMINOPHEN
     Dosage: 1000 MG, 3X/DAY

REACTIONS (4)
  - Ascites [Not Recovered/Not Resolved]
  - Cardiac failure [Not Recovered/Not Resolved]
  - Condition aggravated [Unknown]
  - Hepatic cirrhosis [Not Recovered/Not Resolved]

NARRATIVE: CASE EVENT DATE: 20201216
